FAERS Safety Report 16890629 (Version 2)
Quarter: 2019Q4

REPORT INFORMATION
  Report Type: Spontaneous
  Country: IT (occurrence: IT)
  Receive Date: 20191007
  Receipt Date: 20191024
  Transmission Date: 20200122
  Serious: Yes (Hospitalization)
  Sender: FDA-Public Use
  Company Number: IT-ABBVIE-19K-083-2948382-00

PATIENT
  Age: 45 Year
  Sex: Male
  Weight: 99.5 kg

DRUGS (6)
  1. VENETOCLAX. [Suspect]
     Active Substance: VENETOCLAX
     Dosage: CUMULATIVE DOSE:1320 MG
     Route: 048
     Dates: start: 20190926, end: 20190926
  2. VENETOCLAX. [Suspect]
     Active Substance: VENETOCLAX
     Indication: PRODUCT USED FOR UNKNOWN INDICATION
     Dosage: CUMULATIVE DOSE: 20 MG
     Route: 048
     Dates: start: 20190919, end: 20190919
  3. VENETOCLAX. [Suspect]
     Active Substance: VENETOCLAX
     Dosage: CUMULATIVE DOSE: 520 MG
     Route: 048
     Dates: start: 20190922, end: 20190925
  4. VENETOCLAX. [Suspect]
     Active Substance: VENETOCLAX
     Route: 048
     Dates: start: 20191010
  5. VENETOCLAX. [Suspect]
     Active Substance: VENETOCLAX
     Dosage: CUMULATIVE DOSE 120 MG
     Route: 048
     Dates: start: 20190920, end: 20190921
  6. ALLOPURINOL. [Concomitant]
     Active Substance: ALLOPURINOL
     Indication: PRODUCT USED FOR UNKNOWN INDICATION
     Dates: start: 20190918

REACTIONS (8)
  - C-reactive protein increased [Recovered/Resolved]
  - White blood cell count increased [Recovered/Resolved]
  - Neutrophil count increased [Recovered/Resolved]
  - Cellulitis [Not Recovered/Not Resolved]
  - C-reactive protein increased [Recovered/Resolved]
  - Neutrophil count increased [Recovered/Resolved]
  - Staphylococcal infection [Unknown]
  - White blood cell count increased [Recovered/Resolved]

NARRATIVE: CASE EVENT DATE: 20190928
